FAERS Safety Report 16435184 (Version 2)
Quarter: 2019Q2

REPORT INFORMATION
  Report Type: Spontaneous
  Country: CN (occurrence: CN)
  Receive Date: 20190614
  Receipt Date: 20190618
  Transmission Date: 20190711
  Serious: Yes (Death)
  Sender: FDA-Public Use
  Company Number: CN-PFIZER INC-2019252731

PATIENT
  Age: 29 Year
  Sex: Female

DRUGS (13)
  1. VORICONAZOLE. [Suspect]
     Active Substance: VORICONAZOLE
     Indication: SCOPULARIOPSIS INFECTION
     Dosage: 0.2 G, 2X/DAY
     Route: 042
     Dates: start: 2010
  2. VORICONAZOLE. [Suspect]
     Active Substance: VORICONAZOLE
     Indication: BACILLUS INFECTION
     Dosage: 0.2 G, 2X/DAY
     Route: 042
     Dates: start: 2010
  3. AMPHOTERICIN B. [Suspect]
     Active Substance: AMPHOTERICIN B
     Indication: BACILLUS INFECTION
     Dosage: 1 MG/KG, DAILY
     Dates: start: 201010
  4. CASPOFUNGIN [Concomitant]
     Active Substance: CASPOFUNGIN
     Indication: ASPERGILLUS INFECTION
     Dosage: 50 MG, DAILY
     Route: 042
     Dates: start: 2010
  5. VORICONAZOLE. [Suspect]
     Active Substance: VORICONAZOLE
     Indication: ASPERGILLUS INFECTION
     Dosage: 0.2 G, 2X/DAY
     Route: 042
     Dates: start: 201010
  6. AMPHOTERICIN B. [Suspect]
     Active Substance: AMPHOTERICIN B
     Indication: SCOPULARIOPSIS INFECTION
     Dosage: 0.1 MG/KG, DAILY (LOADING DOSE)
     Dates: start: 201010
  7. ACLARUBICIN [Concomitant]
     Active Substance: ACLARUBICIN
     Indication: ACUTE MONOCYTIC LEUKAEMIA
     Dosage: UNK
     Dates: start: 20100908
  8. LINEZOLID. [Concomitant]
     Active Substance: LINEZOLID
     Indication: BACILLUS INFECTION
     Dosage: 0.6 G, 2X/DAY
     Route: 042
     Dates: start: 201010
  9. PANIPENEM [Concomitant]
     Active Substance: PANIPENEM
     Indication: BACILLUS INFECTION
     Dosage: UNK
     Dates: start: 201010
  10. HOMOHARRINGTONINE [Concomitant]
     Active Substance: OMACETAXINE MEPESUCCINATE
     Indication: ACUTE MONOCYTIC LEUKAEMIA
     Dosage: UNK
     Dates: start: 20100908
  11. CYTARABINE. [Concomitant]
     Active Substance: CYTARABINE
     Indication: ACUTE MONOCYTIC LEUKAEMIA
     Dosage: UNK
     Dates: start: 20100908
  12. CASPOFUNGIN [Concomitant]
     Active Substance: CASPOFUNGIN
     Indication: SCOPULARIOPSIS INFECTION
     Dosage: 70 MG, UNK (LOADING DOSE)
     Route: 042
     Dates: start: 2010
  13. BETAMIPRON [Concomitant]
     Active Substance: BETAMIPRON
     Indication: BACILLUS INFECTION
     Dosage: 0.5 G, 3X/DAY
     Route: 042
     Dates: start: 201010

REACTIONS (1)
  - Drug ineffective [Fatal]

NARRATIVE: CASE EVENT DATE: 2010
